FAERS Safety Report 7173563-3 (Version None)
Quarter: 2010Q4

REPORT INFORMATION
  Report Type: 
  Country: None (occurrence: None)
  Receive Date: 20101215
  Receipt Date: 20101215
  Transmission Date: 20110411
  Serious: Yes (Life-Threatening, Hospitalization, Disabling, Other)
  Sender: FDA-Public Use
  Company Number: None

PATIENT
  Sex: Female
  Weight: 108.8633 kg

DRUGS (2)
  1. SIMVASTATIN 40 MG DRL [Suspect]
     Dosage: 40 MG 1 TABLET EVERY AT BEDTIME RX # 373534 CVS PHARMACY
     Dates: start: 20090910
  2. SIMVASTATIN 40 MG DRL [Suspect]
     Dosage: 40 MG 1 TABLET EVERY AT BEDTIME RX # 373534 CVS PHARMACY
     Dates: start: 20090929

REACTIONS (2)
  - CEREBROVASCULAR ACCIDENT [None]
  - HEADACHE [None]
